FAERS Safety Report 19983974 (Version 1)
Quarter: 2021Q4

REPORT INFORMATION
  Report Type: Spontaneous
  Country: US (occurrence: US)
  Receive Date: 20211021
  Receipt Date: 20211021
  Transmission Date: 20220303
  Serious: Yes (Other)
  Sender: FDA-Public Use
  Company Number: US-BAYER-2021A234842

PATIENT
  Age: 45 Year
  Sex: Female

DRUGS (3)
  1. NEXAVAR [Suspect]
     Active Substance: SORAFENIB
     Indication: Acute myeloid leukaemia
     Dosage: UNK
  2. GILTERITINIB [Suspect]
     Active Substance: GILTERITINIB
     Dosage: DAILY DOSE 120 MG AS MONOTHERAPY
  3. GILTERITINIB [Suspect]
     Active Substance: GILTERITINIB
     Dosage: DAILY DOSE 80 MG

REACTIONS (6)
  - Stomatitis [None]
  - Mastitis [None]
  - Localised infection [None]
  - Weight increased [None]
  - Oedema [None]
  - Off label use [None]
